FAERS Safety Report 18328504 (Version 5)
Quarter: 2021Q3

REPORT INFORMATION
  Report Type: Other
  Country: US (occurrence: US)
  Receive Date: 20200930
  Receipt Date: 20210914
  Transmission Date: 20211014
  Serious: Yes (Other)
  Sender: FDA-Public Use
  Company Number: US-ROCHE-2683846

PATIENT

DRUGS (5)
  1. CAPECITABINE. [Suspect]
     Active Substance: CAPECITABINE
     Indication: NEUROENDOCRINE TUMOUR
     Route: 065
  2. CAPECITABINE. [Suspect]
     Active Substance: CAPECITABINE
     Dosage: ON DAYS 1 THROUGH 14
     Route: 065
  3. CAPECITABINE. [Suspect]
     Active Substance: CAPECITABINE
     Route: 065
  4. TEMOZOLOMIDE. [Suspect]
     Active Substance: TEMOZOLOMIDE
     Dosage: AT BEDTIME ON DAYS 10 THROUGH 14 EVERY 28 DAYS,
     Route: 065
  5. TEMOZOLOMIDE. [Suspect]
     Active Substance: TEMOZOLOMIDE
     Indication: NEUROENDOCRINE TUMOUR
     Route: 065

REACTIONS (36)
  - Dizziness [Unknown]
  - Pneumocystis jirovecii pneumonia [Unknown]
  - Nausea [Unknown]
  - Anaemia [Unknown]
  - Diarrhoea [Unknown]
  - Confusional state [Unknown]
  - Headache [Unknown]
  - Dyspnoea [Unknown]
  - Disease progression [Unknown]
  - Palmar-plantar erythrodysaesthesia syndrome [Unknown]
  - Neutrophil count decreased [Unknown]
  - Rash [Unknown]
  - Haemorrhage [Unknown]
  - Decreased appetite [Unknown]
  - Oedema peripheral [Unknown]
  - Fatigue [Unknown]
  - Insomnia [Unknown]
  - Thrombocytopenia [Unknown]
  - Neutropenia [Unknown]
  - Myeloproliferative neoplasm [Unknown]
  - Skin hyperpigmentation [Unknown]
  - Pruritus [Unknown]
  - Lymphopenia [Unknown]
  - Platelet count decreased [Unknown]
  - Mucosal inflammation [Unknown]
  - Abdominal distension [Unknown]
  - Myelodysplastic syndrome [Unknown]
  - Lymphocyte count decreased [Unknown]
  - Constipation [Unknown]
  - Pyrexia [Unknown]
  - Herpes zoster [Unknown]
  - Arthralgia [Unknown]
  - Abdominal pain [Unknown]
  - Vomiting [Unknown]
  - Dehydration [Unknown]
  - Myalgia [Unknown]
